FAERS Safety Report 12419953 (Version 2)
Quarter: 2016Q2

REPORT INFORMATION
  Report Type: Spontaneous
  Country: US (occurrence: US)
  Receive Date: 20160531
  Receipt Date: 20160601
  Transmission Date: 20160815
  Serious: Yes (Hospitalization, Other)
  Sender: FDA-Public Use
  Company Number: US-PFIZER INC-2016278469

PATIENT
  Age: 44 Year
  Sex: Female
  Weight: 62.6 kg

DRUGS (13)
  1. IMITREX [Concomitant]
     Active Substance: SUMATRIPTAN SUCCINATE
     Indication: MIGRAINE
     Dosage: 100MG DAILY AS NEEDED
     Route: 048
  2. BENTYL [Concomitant]
     Active Substance: DICYCLOMINE HYDROCHLORIDE
     Indication: MUSCLE SPASMS
     Dosage: 10MG EVERY 4 HOURS AS NEEDED
  3. PAXIL [Concomitant]
     Active Substance: PAROXETINE HYDROCHLORIDE
     Indication: DEPRESSION
     Dosage: 10MG ONE TABLET IN THE EVENING
     Route: 048
  4. DIAZEPAM. [Concomitant]
     Active Substance: DIAZEPAM
     Indication: SEIZURE
     Dosage: 2 MG, AS NEEDED
     Route: 048
  5. GABAPENTIN. [Suspect]
     Active Substance: GABAPENTIN
     Indication: SEIZURE
  6. PHENERGAN [Concomitant]
     Active Substance: PROMETHAZINE HYDROCHLORIDE
     Indication: MIGRAINE
  7. BUTORPHANOL [Concomitant]
     Active Substance: BUTORPHANOL
     Indication: MIGRAINE
     Dosage: 10MG NASAL SPRAY, ONE SPRAY IN ONE NOSTRIL UP TO THREE TIMES A DAY AS NEEDED
     Route: 045
  8. GABAPENTIN. [Suspect]
     Active Substance: GABAPENTIN
     Indication: EPILEPSY
     Dosage: 300MG CAPSULES THREE TIMES A DAY
     Route: 048
  9. PAXIL [Concomitant]
     Active Substance: PAROXETINE HYDROCHLORIDE
     Indication: HOT FLUSH
  10. LORAZEPAM. [Suspect]
     Active Substance: LORAZEPAM
     Indication: ANXIETY
     Dosage: 1 MG PILL THREE TIMES A DAY BY MOUTH AS NEEDED
     Route: 048
  11. LEVETIRACETAM. [Suspect]
     Active Substance: LEVETIRACETAM
     Indication: SEIZURE
  12. PHENERGAN [Concomitant]
     Active Substance: PROMETHAZINE HYDROCHLORIDE
     Indication: NAUSEA
     Dosage: 25MG ONE TABLET BY MOUTH EVERY 6 HOURS AS NEEDED
     Route: 048
  13. LEVETIRACETAM. [Suspect]
     Active Substance: LEVETIRACETAM
     Indication: EPILEPSY
     Dosage: 750 MG, 2X/DAY
     Route: 048

REACTIONS (12)
  - Muscle spasms [Unknown]
  - Ankle fracture [Unknown]
  - Spinal cord oedema [Unknown]
  - Nerve compression [Not Recovered/Not Resolved]
  - Nerve injury [Unknown]
  - Ligament sprain [Unknown]
  - Sensory loss [Unknown]
  - Bone cancer [Unknown]
  - Pain in extremity [Not Recovered/Not Resolved]
  - Seizure [Unknown]
  - Condition aggravated [Unknown]
  - Peroneal nerve palsy [Not Recovered/Not Resolved]

NARRATIVE: CASE EVENT DATE: 20160408
